FAERS Safety Report 9214819 (Version 1)
Quarter: 2013Q2

REPORT INFORMATION
  Report Type: Spontaneous
  Country: US (occurrence: US)
  Receive Date: 20130405
  Receipt Date: 20130405
  Transmission Date: 20140414
  Serious: Yes (Hospitalization)
  Sender: FDA-Public Use
  Company Number: US-JNJFOC-20130317604

PATIENT
  Sex: 0

DRUGS (11)
  1. INFLIXIMAB, RECOMBINANT [Suspect]
     Indication: RHEUMATOID ARTHRITIS
     Route: 042
  2. INFLIXIMAB, RECOMBINANT [Suspect]
     Indication: PSORIATIC ARTHROPATHY
     Route: 042
  3. INFLIXIMAB, RECOMBINANT [Suspect]
     Indication: PSORIASIS
     Route: 042
  4. INFLIXIMAB, RECOMBINANT [Suspect]
     Indication: INFLAMMATORY BOWEL DISEASE
     Route: 042
  5. INFLIXIMAB, RECOMBINANT [Suspect]
     Indication: ANKYLOSING SPONDYLITIS
     Route: 042
  6. CORTICOSTEROIDS [Suspect]
     Indication: RHEUMATOID ARTHRITIS
     Route: 048
  7. CORTICOSTEROIDS [Suspect]
     Indication: PSORIATIC ARTHROPATHY
     Route: 048
  8. CORTICOSTEROIDS [Suspect]
     Indication: PSORIASIS
     Route: 048
  9. CORTICOSTEROIDS [Suspect]
     Indication: INFLAMMATORY BOWEL DISEASE
     Route: 048
  10. CORTICOSTEROIDS [Suspect]
     Indication: ANKYLOSING SPONDYLITIS
     Route: 048
  11. METHOTREXATE [Concomitant]
     Route: 065

REACTIONS (1)
  - Herpes zoster [Unknown]
